FAERS Safety Report 9820740 (Version 1)
Quarter: 2013Q4

REPORT INFORMATION
  Report Type: Spontaneous
  Country: US (occurrence: None)
  Receive Date: 20131028
  Receipt Date: 20131028
  Transmission Date: 20140711
  Serious: Yes (Other)
  Sender: FDA-Public Use
  Company Number: 2013US001383

PATIENT
  Age: 63 Year
  Sex: Female
  Weight: 67 kg

DRUGS (7)
  1. ICLUSIG [Suspect]
     Indication: CHRONIC MYELOID LEUKAEMIA
     Route: 048
     Dates: start: 20130317, end: 20130524
  2. IMITREX (SUMATRIPTAN) [Concomitant]
  3. LANSOPRAZOLE (LANSOPRAZOLE) [Concomitant]
  4. ADVIL (IBUPROFEN) [Concomitant]
  5. MUSCLE RELAXANTS [Concomitant]
  6. DILOTAB (PARACETAMOL, PHENYLPROPANOLAMINE HYDROCHLORIDE) [Concomitant]
  7. PROPRANOLOL (PROPRANOLOL) [Concomitant]

REACTIONS (18)
  - Pain in jaw [None]
  - White blood cell count increased [None]
  - Dysphonia [None]
  - Pain of skin [None]
  - Erythema [None]
  - Hypertension [None]
  - Pain [None]
  - Asthenia [None]
  - Fatigue [None]
  - Dry skin [None]
  - Muscle spasms [None]
  - Nausea [None]
  - Constipation [None]
  - Weight decreased [None]
  - Decreased appetite [None]
  - Abdominal pain [None]
  - Headache [None]
  - Rash [None]
